FAERS Safety Report 8762345 (Version 1)
Quarter: 2012Q4

REPORT INFORMATION
  Report Type: 
  Country: BR (occurrence: BR)
  Receive Date: 20120828
  Receipt Date: 20120828
  Transmission Date: 20130627
  Serious: Yes (Other)
  Sender: FDA-Public Use
  Company Number: BR-PFIZER INC-2012206113

PATIENT
  Age: 61 Year
  Sex: Female
  Weight: 72 kg

DRUGS (13)
  1. FRONTAL XR [Suspect]
     Indication: ANXIETY
     Dosage: 0.5 mg, 1x/day
     Route: 048
     Dates: start: 20120122
  2. FRONTAL XR [Suspect]
     Indication: PANIC ATTACK
  3. ADDERA [Concomitant]
     Indication: VITAMIN SUPPLEMENTATION
     Dosage: UNK
     Dates: start: 2007
  4. ARADOIS [Concomitant]
     Indication: RENAL DISORDER
     Dosage: UNK
     Dates: start: 2007
  5. AZUKON [Concomitant]
     Indication: DIABETES MELLITUS
     Dosage: UNK
     Dates: start: 2011
  6. BENERVA [Concomitant]
     Indication: VITAMIN SUPPLEMENTATION
     Dosage: UNK
     Dates: start: 2006
  7. SELOZOK [Concomitant]
     Indication: CARDIAC DISORDER
     Dosage: UNK
     Dates: start: 2011
  8. SYNTHROID [Concomitant]
     Indication: THYROID DISORDER
     Dosage: UNK
     Dates: start: 2002
  9. GLIFAGE [Concomitant]
     Indication: DIABETES MELLITUS
     Dosage: UNK
     Dates: start: 2010
  10. OMEPRAZOLE [Concomitant]
     Indication: GASTRIC DISORDER
     Dosage: UNK
  11. PROCIMAX [Concomitant]
     Indication: DEPRESSION
     Dosage: UNK
     Dates: start: 201201
  12. ROSUCOR [Concomitant]
     Indication: DIABETES MELLITUS
     Dosage: UNK
     Dates: start: 2008
  13. ONGLYZA [Concomitant]
     Indication: DIABETES MELLITUS
     Dosage: UNK
     Dates: start: 2010

REACTIONS (6)
  - Drug dose omission [Unknown]
  - Respiratory disorder [Unknown]
  - Cardiovascular disorder [Unknown]
  - Dyspnoea [Unknown]
  - Feeling abnormal [Unknown]
  - Malaise [Unknown]
